FAERS Safety Report 22053733 (Version 2)
Quarter: 2023Q1

REPORT INFORMATION
  Report Type: Spontaneous
  Country: HK (occurrence: HK)
  Receive Date: 20230302
  Receipt Date: 20230309
  Transmission Date: 20230417
  Serious: Yes (Hospitalization)
  Sender: FDA-Public Use
  Company Number: HK-JNJFOC-20230235468

PATIENT
  Age: 60 Year
  Sex: Female

DRUGS (1)
  1. MINOXIDIL [Suspect]
     Active Substance: MINOXIDIL
     Indication: Alopecia
     Dosage: SIX SPRAYS AT THE BEGINNING AND REDUCED TO FOUR SPRAYS LATER. TWICE A DAY.
     Route: 061
     Dates: start: 20230123, end: 20230211

REACTIONS (6)
  - Excessive granulation tissue [Recovering/Resolving]
  - Application site discomfort [Recovering/Resolving]
  - Application site swelling [Recovering/Resolving]
  - Application site erythema [Not Recovered/Not Resolved]
  - Application site pruritus [Recovering/Resolving]
  - Application site warmth [Not Recovered/Not Resolved]

NARRATIVE: CASE EVENT DATE: 20230101
